FAERS Safety Report 5622289-3 (Version None)
Quarter: 2008Q1

REPORT INFORMATION
  Report Type: 
  Country: None (occurrence: None)
  Receive Date: 20080206
  Receipt Date: 20080124
  Transmission Date: 20080703
  Serious: Yes (Hospitalization)
  Sender: FDA-Public Use
  Company Number: A-JP2007-18699

PATIENT
  Age: 59 Year
  Sex: Female

DRUGS (17)
  1. TRACLEER [Suspect]
     Indication: PULMONARY HYPERTENSION
     Dosage: 62.5 MG, QD, ORAL
     Route: 048
     Dates: start: 20070423, end: 20070506
  2. TRACLEER [Suspect]
     Indication: PULMONARY HYPERTENSION
     Dosage: 62.5 MG, QD, ORAL
     Route: 048
     Dates: start: 20070405, end: 20070603
  3. TRACLEER [Suspect]
     Indication: PULMONARY HYPERTENSION
     Dosage: 62.5 MG, QD, ORAL
     Route: 048
     Dates: start: 20070604, end: 20070608
  4. TRACLEER [Suspect]
     Indication: PULMONARY HYPERTENSION
     Dosage: 62.5 MG, QD, ORAL
     Route: 048
     Dates: start: 20070622, end: 20070628
  5. SULFAMETHOXAZOLE W/TRIMETHOPRIM) (TRIMETHORMIN, SULFAMETHOXAZOLE [Suspect]
  6. AMLODIPINE [Concomitant]
  7. PITAVASTATIN CALCIUM  (ITAVASTATIN CALCIUM) [Concomitant]
  8. ANTIBIOTICS-RESISTANT LACTIC (ANTIBIOTICS-RESISTANT LACTIC ACID BACTER [Concomitant]
  9. URSODIOL [Concomitant]
  10. CLARITHROMYCIN [Concomitant]
  11. ALPROSTADIL [Concomitant]
  12. PREDNISOLONE ACETATE [Concomitant]
  13. LANSOPRAZOLE [Concomitant]
  14. FLUNITRAZEPAM (FLUNITRAZEPAM) [Concomitant]
  15. ETIZOLAM (ETIZOLAM) [Concomitant]
  16. NEUROTROPIN (ORGAN LYSATE, STANDARDIZED) [Concomitant]
  17. OXYGEN (OXYGEN) [Concomitant]

REACTIONS (3)
  - CYTOMEGALOVIRUS INFECTION [None]
  - PANCYTOPENIA [None]
  - PLEURAL EFFUSION [None]
